FAERS Safety Report 17571370 (Version 3)
Quarter: 2020Q2

REPORT INFORMATION
  Report Type: Spontaneous
  Country: US (occurrence: US)
  Receive Date: 20200323
  Receipt Date: 20200512
  Transmission Date: 20200713
  Serious: Yes (Hospitalization)
  Sender: FDA-Public Use
  Company Number: US-MEDEXUS PHARMA, INC.-2020MED00050

PATIENT
  Age: 72 Year
  Sex: Female
  Weight: 55.33 kg

DRUGS (3)
  1. PROLIA [Concomitant]
     Active Substance: DENOSUMAB
     Dosage: ^SHOT^ 2X/YEAR (EVERY 6 MONTHS)
  2. RASUVO [Suspect]
     Active Substance: METHOTREXATE SODIUM
     Indication: BONE DISORDER
     Dosage: 15 MG ^SAMPLES^, 1X/WEEK ON MONDAYS IN HER BELLY, ALTERNATING SIDES
     Route: 058
  3. FOLIC ACID. [Concomitant]
     Active Substance: FOLIC ACID

REACTIONS (12)
  - Amnesia [Not Recovered/Not Resolved]
  - Chest pain [Recovered/Resolved]
  - Abdominal pain upper [Recovered/Resolved]
  - Respiratory arrest [Recovered/Resolved]
  - Hernia [Unknown]
  - Cold sweat [Recovered/Resolved]
  - Gastrooesophageal reflux disease [Unknown]
  - Off label use [Not Recovered/Not Resolved]
  - Device malfunction [Unknown]
  - Feeling hot [Not Recovered/Not Resolved]
  - Acute myocardial infarction [Recovering/Resolving]
  - Incorrect dose administered [Not Recovered/Not Resolved]

NARRATIVE: CASE EVENT DATE: 2018
